FAERS Safety Report 8853171 (Version 1)
Quarter: 2012Q4

REPORT INFORMATION
  Report Type: 
  Country: US (occurrence: US)
  Receive Date: 20121022
  Receipt Date: 20121022
  Transmission Date: 20130627
  Serious: No
  Sender: FDA-Public Use
  Company Number: US-009507513-1210USA004179

PATIENT
  Age: 21 Year
  Sex: Female
  Weight: 43.99 kg

DRUGS (2)
  1. NUVARING [Suspect]
     Indication: CONTRACEPTION
     Dosage: 3 weeks in one week ring free break
     Route: 067
     Dates: start: 201104
  2. NUVARING [Suspect]
     Dosage: 3 weeks in one week ring free break
     Route: 067
     Dates: start: 20121007

REACTIONS (2)
  - Device expulsion [Unknown]
  - Inappropriate schedule of drug administration [Unknown]
